FAERS Safety Report 15787449 (Version 4)
Quarter: 2019Q1

REPORT INFORMATION
  Report Type: Spontaneous
  Country: US (occurrence: US)
  Receive Date: 20190103
  Receipt Date: 20190320
  Transmission Date: 20190417
  Serious: Yes (Other)
  Sender: FDA-Public Use
  Company Number: US-PFIZER INC-2018534468

PATIENT
  Age: 64 Year
  Sex: Male

DRUGS (2)
  1. THROMBIN [Suspect]
     Active Substance: THROMBIN
     Dosage: UNK
  2. HEPARIN SODIUM. [Suspect]
     Active Substance: HEPARIN SODIUM
     Dosage: UNK

REACTIONS (5)
  - Activated partial thromboplastin time prolonged [Unknown]
  - Prothrombin time prolonged [Unknown]
  - Duodenal ulcer haemorrhage [Unknown]
  - Haemorrhage [Unknown]
  - Factor V inhibition [Unknown]
